FAERS Safety Report 7676978-X (Version None)
Quarter: 2011Q3

REPORT INFORMATION
  Report Type: 
  Country: None (occurrence: None)
  Receive Date: 20110811
  Receipt Date: 20110808
  Transmission Date: 20111222
  Serious: Yes (Other)
  Sender: FDA-Public Use
  Company Number: CA-PFIZER INC-2011160718

PATIENT
  Age: 77 Year
  Sex: Male
  Weight: 109 kg

DRUGS (5)
  1. CRESTOR [Concomitant]
     Indication: BLOOD CHOLESTEROL
     Dosage: 20 MG, 1X/DAY
     Route: 048
  2. AGGRENOX [Concomitant]
     Indication: CEREBROVASCULAR ACCIDENT PROPHYLAXIS
     Dosage: 200 MG, 2X/DAY
     Route: 048
  3. ALTACE [Concomitant]
     Indication: BLOOD PRESSURE
     Dosage: 10 MG, 1X/DAY
     Route: 048
  4. DILANTIN [Suspect]
     Indication: GRAND MAL CONVULSION
     Dosage: 400 MG ONCE PER DAY IN THE MORNING
     Route: 048
  5. PHENOBARBITAL [Concomitant]
     Indication: CONVULSION
     Dosage: 30 MG, 2X/DAY
     Route: 048

REACTIONS (3)
  - CONVULSION [None]
  - ANTICONVULSANT DRUG LEVEL BELOW THERAPEUTIC [None]
  - ROAD TRAFFIC ACCIDENT [None]
